FAERS Safety Report 21333878 (Version 1)
Quarter: 2022Q3

REPORT INFORMATION
  Report Type: Spontaneous
  Country: US (occurrence: None)
  Receive Date: 20220913
  Receipt Date: 20220913
  Transmission Date: 20221027
  Serious: No
  Sender: FDA-Public Use
  Company Number: None

PATIENT
  Sex: Male

DRUGS (1)
  1. DIMETHYL FUMARATE [Suspect]
     Active Substance: DIMETHYL FUMARATE
     Dosage: FREQUENCY : TWICE A DAY;?
     Route: 048

REACTIONS (9)
  - Flushing [None]
  - Urticaria [None]
  - Erythema [None]
  - COVID-19 [None]
  - Therapy interrupted [None]
  - Vertigo [None]
  - Fall [None]
  - Balance disorder [None]
  - Memory impairment [None]
